FAERS Safety Report 6321445 (Version 26)
Quarter: 2014Q1

REPORT INFORMATION
  Report Type: Spontaneous
  Country: US (occurrence: US)
  Receive Date: 20070529
  Receipt Date: 20140122
  Transmission Date: 20141002
  Serious: Yes (Hospitalization, Other)
  Sender: FDA-Public Use
  Company Number: PHEH2007US07738

PATIENT
  Age: 53 Year
  Sex: Female
  Weight: 65.81 kg

DRUGS (48)
  1. ZOMETA [Suspect]
     Indication: HYPERCALCAEMIA OF MALIGNANCY
     Dosage: 4 MG, QMO
     Dates: start: 20031125, end: 20070323
  2. RADIATION [Suspect]
  3. ALBUTEROL [Suspect]
  4. ACTONEL [Suspect]
  5. DECADRON [Concomitant]
  6. TAXOL [Concomitant]
     Indication: NON-SMALL CELL LUNG CANCER
     Dates: start: 200510
  7. CARBOPLATIN [Concomitant]
     Indication: NON-SMALL CELL LUNG CANCER
     Dates: start: 200308, end: 200409
  8. AVASTIN [Concomitant]
     Indication: NON-SMALL CELL LUNG CANCER
     Dates: start: 200308, end: 200409
  9. TARCEVA [Concomitant]
     Indication: NON-SMALL CELL LUNG CANCER
     Dates: start: 200509
  10. CISPLATIN [Concomitant]
     Indication: NON-SMALL CELL LUNG CANCER
     Dates: start: 200605, end: 200611
  11. NAVELBINE [Concomitant]
     Indication: NON-SMALL CELL LUNG CANCER
     Dates: start: 200308, end: 200409
  12. TAXOTERE [Concomitant]
     Indication: NON-SMALL CELL LUNG CANCER
     Dates: start: 200508, end: 200509
  13. VERSED [Concomitant]
     Dosage: 2 MG,
     Dates: start: 20061211, end: 20061211
  14. VERSED [Concomitant]
     Dosage: 2 MG, UNK
     Dates: start: 20070205, end: 20070205
  15. SUBLIMAZE [Concomitant]
     Dosage: 1 ML,
     Dates: start: 20061211, end: 20061211
  16. SUBLIMAZE [Concomitant]
     Dosage: 1 MG, UNK
     Dates: start: 20070205, end: 20070205
  17. PROPOFOL [Concomitant]
     Dosage: 50 MG,
     Dates: start: 20061211, end: 20061211
  18. PROPOFOL [Concomitant]
     Dosage: 50 MG, UNK
     Dates: start: 20070205, end: 20070205
  19. LIDOCAINE [Concomitant]
     Dosage: 5.4 ML 2%
     Dates: start: 20061211, end: 20061211
  20. LIDOCAINE [Concomitant]
     Dosage: 5.4 ML 2%
     Dates: start: 20070205, end: 20070205
  21. PROMETHAZINE [Concomitant]
     Dosage: 12.5 MG,
     Route: 042
     Dates: start: 20061211, end: 20061211
  22. PROMETHAZINE [Concomitant]
     Dosage: 12.5 MG, UNK
     Route: 042
     Dates: start: 20070205, end: 20070205
  23. EFFEXOR [Concomitant]
     Dosage: 150 MG,DAILY
     Route: 048
  24. LORTAB [Concomitant]
     Indication: PAIN
  25. PREVACID [Concomitant]
     Dosage: 30 MG, DAILY
     Route: 048
  26. TYLENOL [Concomitant]
  27. KEFZOL [Concomitant]
     Dosage: 1 G,
  28. COLACE [Concomitant]
     Dosage: 100 MG, BID
  29. HEPARIN [Concomitant]
  30. MORPHINE [Concomitant]
  31. ONDANSETRON [Concomitant]
     Dosage: 4 MG, Q6H, PRN
  32. RESTORIL [Concomitant]
     Dosage: 12.5 MG, Q6H, PRN
  33. CIPROFLOXACIN [Concomitant]
     Dosage: 500 MG, BID
     Route: 048
  34. PERIDEX [Concomitant]
  35. CARBIDOPA W/LEVODOPA [Concomitant]
     Dosage: 1 DF(25/100 ONE TABLET EVERY BEDTIME)
  36. LOVENOX [Concomitant]
     Dosage: 30 MG, Q24H
  37. ROMAZICON [Concomitant]
  38. MIDAZOLAM [Concomitant]
  39. NARCAN [Concomitant]
  40. UNASYN [Concomitant]
  41. NEUPOGEN [Concomitant]
     Dosage: 300 UG, UNK
     Dates: start: 20070703, end: 20070717
  42. LEUKINE [Concomitant]
     Dosage: 500 UG, UNK
     Dates: start: 20070705, end: 20070711
  43. COMPAZINE [Concomitant]
  44. KLONOPIN [Concomitant]
  45. COUMADIN [Concomitant]
  46. ALEVE [Concomitant]
  47. CARAFATE [Concomitant]
     Dosage: 1 MG, TID
  48. DURAGESIC [Concomitant]

REACTIONS (112)
  - Lung neoplasm malignant [Unknown]
  - Second primary malignancy [Unknown]
  - Malnutrition [Unknown]
  - Chronic sinusitis [Unknown]
  - Dysthymic disorder [Unknown]
  - Magnesium metabolism disorder [Unknown]
  - Hypomagnesaemia [Unknown]
  - Restrictive pulmonary disease [Unknown]
  - Dyspnoea [Recovering/Resolving]
  - Hypoxia [Unknown]
  - Bronchospasm [Recovering/Resolving]
  - Hyperglycaemia [Unknown]
  - Restless legs syndrome [Unknown]
  - Chest pain [Unknown]
  - Emphysema [Unknown]
  - Osteonecrosis of jaw [Unknown]
  - Erythema [Unknown]
  - Swelling [Unknown]
  - Oral disorder [Unknown]
  - Osteoradionecrosis [Unknown]
  - Osteitis [Unknown]
  - Bone disorder [Unknown]
  - Injury [Unknown]
  - Metastases to meninges [Unknown]
  - Disability [Unknown]
  - Pain [Unknown]
  - Anxiety [Unknown]
  - Hypertension [Unknown]
  - Renal failure [Unknown]
  - Anhedonia [Unknown]
  - Fall [Unknown]
  - Wrist fracture [Unknown]
  - Necrosis [Unknown]
  - Osteomyelitis chronic [Unknown]
  - Osteomyelitis [Unknown]
  - Arthritis [Unknown]
  - Subarachnoid haemorrhage [Unknown]
  - Arteriosclerosis coronary artery [Unknown]
  - Oedema peripheral [Unknown]
  - Pseudomembranous colitis [Unknown]
  - Sinus tachycardia [Unknown]
  - Respiratory failure [Unknown]
  - Haemosiderosis [Unknown]
  - Chronic obstructive pulmonary disease [Unknown]
  - Abdominal pain [Unknown]
  - Constipation [Recovered/Resolved]
  - Tinnitus [Unknown]
  - Skin ulcer [Unknown]
  - Epistaxis [Unknown]
  - Back pain [Unknown]
  - Rectal haemorrhage [Unknown]
  - Dysphagia [Unknown]
  - Osteopenia [Unknown]
  - Musculoskeletal pain [Unknown]
  - Amnesia [Unknown]
  - Dizziness [Unknown]
  - Gastrooesophageal reflux disease [Unknown]
  - Depression [Unknown]
  - Hypokalaemia [Unknown]
  - Weight increased [Unknown]
  - Hypoacusis [Unknown]
  - Nasal congestion [Unknown]
  - Dyspnoea exertional [Unknown]
  - Hypoaesthesia [Unknown]
  - Chills [Unknown]
  - Pyrexia [Unknown]
  - Urticaria [Unknown]
  - Incontinence [Unknown]
  - Weight decreased [Unknown]
  - Appetite disorder [Unknown]
  - Breathing-related sleep disorder [Unknown]
  - Dyspepsia [Unknown]
  - Ligament sprain [Unknown]
  - Arthralgia [Unknown]
  - Joint swelling [Unknown]
  - Wound necrosis [Unknown]
  - Skin necrosis [Unknown]
  - Mouth ulceration [Unknown]
  - Alveolar aeration excessive [Unknown]
  - Alveolitis allergic [Unknown]
  - Atrophic vulvovaginitis [Unknown]
  - Intervertebral disc degeneration [Unknown]
  - Myofascial pain syndrome [Unknown]
  - Metastases to bone [Unknown]
  - Spinal osteoarthritis [Unknown]
  - Vertebral foraminal stenosis [Unknown]
  - Gait disturbance [Unknown]
  - Kyphosis [Unknown]
  - Radiculitis [Unknown]
  - Tremor [Unknown]
  - Wound [Unknown]
  - Deafness [Unknown]
  - Cellulitis [Unknown]
  - Gastritis [Unknown]
  - Skin hyperpigmentation [Unknown]
  - Temperature intolerance [Unknown]
  - Cholelithiasis [Unknown]
  - Nausea [Unknown]
  - Fatigue [Unknown]
  - Headache [Unknown]
  - Pulmonary fibrosis [Unknown]
  - Osteosclerosis [Unknown]
  - Dermatitis [Unknown]
  - Spinal pain [Unknown]
  - Humerus fracture [Unknown]
  - Osteoarthritis [Unknown]
  - Radiation skin injury [Unknown]
  - Bone pain [Unknown]
  - Enteritis [Recovered/Resolved]
  - Clostridium difficile infection [Recovered/Resolved]
  - Blister [Not Recovered/Not Resolved]
  - Vomiting [Unknown]
